FAERS Safety Report 6412869-X (Version None)
Quarter: 2009Q4

REPORT INFORMATION
  Report Type: 
  Country: None (occurrence: None)
  Receive Date: 20091023
  Receipt Date: 20091012
  Transmission Date: 20100525
  Serious: Yes (Hospitalization, Other)
  Sender: FDA-Public Use
  Company Number: PHEH2009US13626

PATIENT
  Sex: Female
  Weight: 96.145 kg

DRUGS (2)
  1. RECLAST [Suspect]
     Indication: OSTEOPOROSIS
     Dosage: 5 MG, ONCE/SINGLE
     Dates: start: 20090818
  2. FERRITIN [Concomitant]
     Dosage: UNK, UNK
     Route: 048

REACTIONS (2)
  - BONE DENSITY DECREASED [None]
  - SPINAL FUSION SURGERY [None]
